FAERS Safety Report 23692787 (Version 1)
Quarter: 2024Q2

REPORT INFORMATION
  Report Type: Spontaneous
  Country: BR (occurrence: BR)
  Receive Date: 20240401
  Receipt Date: 20240401
  Transmission Date: 20240715
  Serious: Yes (Other)
  Sender: FDA-Public Use
  Company Number: BR-WT-2024-AMR-036243

PATIENT
  Sex: Male

DRUGS (1)
  1. AVODART [Suspect]
     Active Substance: DUTASTERIDE
     Route: 065
     Dates: start: 202403

REACTIONS (3)
  - Urethral obstruction [Unknown]
  - Semen viscosity abnormal [Unknown]
  - Testicular pain [Unknown]
